FAERS Safety Report 8796814 (Version 2)
Quarter: 2012Q4

REPORT INFORMATION
  Report Type: 
  Country: JP (occurrence: JP)
  Receive Date: 20120919
  Receipt Date: 20120926
  Transmission Date: 20130627
  Serious: Yes (Hospitalization, Other)
  Sender: FDA-Public Use
  Company Number: JP-ABBOTT-12P-087-0979820-00

PATIENT
  Age: 17 Year
  Sex: Female

DRUGS (5)
  1. CYCLOSPORINE [Suspect]
     Indication: STILL^S DISEASE ADULT ONSET
     Dates: start: 20090613
  2. PREDNISOLONE [Concomitant]
     Indication: STILL^S DISEASE ADULT ONSET
     Dates: start: 20081211
  3. PREDNISOLONE [Concomitant]
  4. PREDNISOLONE [Concomitant]
  5. METHYLPREDISOLONE [Concomitant]
     Indication: STILL^S DISEASE ADULT ONSET
     Dates: start: 20090613, end: 20090616

REACTIONS (2)
  - Still^s disease adult onset [Recovered/Resolved]
  - Drug effect incomplete [Recovered/Resolved]
